FAERS Safety Report 4946015-6 (Version None)
Quarter: 2006Q1

REPORT INFORMATION
  Report Type: 
  Country: None (occurrence: None)
  Receive Date: 20060316
  Receipt Date: 20051013
  Transmission Date: 20060701
  Serious: Yes (Hospitalization)
  Sender: FDA-Public Use
  Company Number: PR-MERCK-0510USA07184

PATIENT
  Age: 65 Year
  Sex: Female
  Weight: 64 kg

DRUGS (6)
  1. VIOXX [Suspect]
     Indication: ARTHRALGIA
     Route: 048
     Dates: start: 20000101, end: 20040101
  2. DESYREL [Concomitant]
     Indication: DEPRESSION
     Route: 065
     Dates: start: 20010101
  3. GLUCOPHAGE [Concomitant]
     Indication: DIABETES MELLITUS NON-INSULIN-DEPENDENT
     Route: 065
     Dates: start: 20010101
  4. GLUCOTROL [Concomitant]
     Indication: DIABETES MELLITUS NON-INSULIN-DEPENDENT
     Route: 065
     Dates: start: 20000101
  5. WELLBUTRIN [Concomitant]
     Indication: DEPRESSION
     Route: 065
     Dates: start: 20010101
  6. PROZAC [Concomitant]
     Indication: DEPRESSION
     Route: 065
     Dates: start: 19980101

REACTIONS (7)
  - ABDOMINAL PAIN [None]
  - ARTHRITIS [None]
  - BLOOD CHOLESTEROL INCREASED [None]
  - CEREBROVASCULAR ACCIDENT [None]
  - HYPERTENSION [None]
  - INSOMNIA [None]
  - OVERDOSE [None]
